FAERS Safety Report 8985470 (Version 2)
Quarter: 2013Q2

REPORT INFORMATION
  Report Type: Spontaneous
  Country: JP (occurrence: JP)
  Receive Date: 20121226
  Receipt Date: 20130422
  Transmission Date: 20140414
  Serious: Yes (Hospitalization, Disabling, Other)
  Sender: FDA-Public Use
  Company Number: JP-PFIZER INC-2012325045

PATIENT
  Age: 63 Year
  Sex: Male
  Weight: 72 kg

DRUGS (2)
  1. SUTENT [Suspect]
     Indication: RENAL CELL CARCINOMA
     Dosage: 50 MG, 1X/DAY
     Route: 048
     Dates: start: 20110901, end: 20120530
  2. SUTENT [Suspect]
     Dosage: 37.5 MG DAILY
     Route: 048
     Dates: start: 20120531, end: 20121209

REACTIONS (3)
  - Liver disorder [Recovering/Resolving]
  - Renal disorder [Not Recovered/Not Resolved]
  - Pleural effusion [Recovered/Resolved]
